FAERS Safety Report 9767912 (Version 3)
Quarter: 2014Q1

REPORT INFORMATION
  Report Type: Report from Study
  Country: GB (occurrence: GB)
  Receive Date: 20131217
  Receipt Date: 20140203
  Transmission Date: 20141002
  Serious: Yes (Death, Hospitalization, Other)
  Sender: FDA-Public Use
  Company Number: PHHO2013GB016353

PATIENT
  Sex: 0

DRUGS (4)
  1. AFINITOR [Suspect]
     Indication: BREAST CANCER METASTATIC
     Dosage: 10 MG, QD
     Route: 048
     Dates: start: 20131003, end: 20131208
  2. EXEMESTANE [Suspect]
     Indication: BREAST CANCER METASTATIC
     Dosage: 25 MG, QD
     Route: 048
     Dates: start: 20131003, end: 20131208
  3. CO CODAMOL [Concomitant]
     Indication: PAIN
     Dosage: 2 DF, PRN
     Dates: start: 201202
  4. IBUPROFEN [Concomitant]
     Indication: PAIN
     Dosage: 200 MG, BID
     Dates: start: 20131031

REACTIONS (5)
  - Sudden death [Fatal]
  - Lethargy [Unknown]
  - Mucosal inflammation [Unknown]
  - Vomiting [Unknown]
  - Dehydration [Unknown]
